FAERS Safety Report 8514050-7 (Version None)
Quarter: 2012Q2

REPORT INFORMATION
  Report Type: 
  Country: None (occurrence: None)
  Receive Date: 20120406
  Receipt Date: 20081219
  Transmission Date: 20120825
  Serious: Yes (Other)
  Sender: FDA-Public Use
  Company Number: PHEH2008US10883

PATIENT
  Sex: Male

DRUGS (5)
  1. TASIGNA [Suspect]
  2. POTASSIUM CHLORIDE [Concomitant]
  3. PROTONIX ^WYETH-AYERST^ (PANTOPRAZOLE SODIUM) [Concomitant]
  4. NORVASC [Concomitant]
  5. HYZAAR [Concomitant]

REACTIONS (3)
  - DYSGEUSIA [None]
  - ANAEMIA [None]
  - DISEASE PROGRESSION [None]
